FAERS Safety Report 5279103-8 (Version None)
Quarter: 2007Q1

REPORT INFORMATION
  Report Type: 
  Country: None (occurrence: None)
  Receive Date: 20070327
  Receipt Date: 20070327
  Transmission Date: 20070707
  Serious: No
  Sender: FDA-Public Use
  Company Number: None

PATIENT
  Age: 75 Year
  Sex: Male
  Weight: 73.9363 kg

DRUGS (4)
  1. CISPLATIN [Suspect]
     Indication: NASOPHARYNGEAL CANCER
     Dosage: 200 MG   Q MONTH  IV
     Route: 042
     Dates: start: 20070116, end: 20070206
  2. TIMOLOL ALMEATE OPH SOLN [Concomitant]
  3. OMEPRAZOLE [Concomitant]
  4. OXYCODONE HCL [Concomitant]

REACTIONS (1)
  - DEAFNESS [None]
